FAERS Safety Report 6400371-0 (Version None)
Quarter: 2009Q4

REPORT INFORMATION
  Report Type: 
  Country: None (occurrence: None)
  Receive Date: 20091014
  Receipt Date: 20091005
  Transmission Date: 20100525
  Serious: Yes (Hospitalization, Other)
  Sender: FDA-Public Use
  Company Number: CA-JNJCH-2009026542

PATIENT
  Age: 2 Year
  Sex: Male

DRUGS (1)
  1. BENYLIN [Suspect]
     Indication: ACCIDENTAL EXPOSURE
     Dosage: TEXT:UNSPECIFIED
     Route: 048

REACTIONS (2)
  - ACCIDENTAL EXPOSURE [None]
  - VOMITING [None]
